FAERS Safety Report 10878978 (Version 1)
Quarter: 2015Q1

REPORT INFORMATION
  Report Type: Report from Study
  Country: DE (occurrence: DE)
  Receive Date: 20150302
  Receipt Date: 20150302
  Transmission Date: 20150721
  Serious: Yes (Other)
  Sender: FDA-Public Use
  Company Number: DE-BAYER-2015-028618

PATIENT
  Age: 25 Year
  Sex: Female

DRUGS (2)
  1. IBU [Concomitant]
     Active Substance: IBUPROFEN
     Indication: ANALGESIC THERAPY
     Dosage: 800 MG, UNK
     Route: 048
     Dates: start: 201411
  2. JAYDESS [Suspect]
     Active Substance: LEVONORGESTREL
     Dosage: 12 MCG/24HR, CONT
     Route: 015
     Dates: start: 201411

REACTIONS (6)
  - Dyspareunia [Recovered/Resolved]
  - Menorrhagia [None]
  - Abdominal pain lower [Recovered/Resolved]
  - Genital haemorrhage [Recovered/Resolved]
  - Circulatory collapse [None]
  - Procedural pain [None]

NARRATIVE: CASE EVENT DATE: 201411
